FAERS Safety Report 24970287 (Version 3)
Quarter: 2025Q3

REPORT INFORMATION
  Report Type: Report from Study
  Country: US (occurrence: US)
  Receive Date: 20250214
  Receipt Date: 20250810
  Transmission Date: 20251020
  Serious: Yes (Other)
  Sender: ALEXION PHARMACEUTICALS
  Company Number: US-AstraZeneca-CH-00805817A

PATIENT
  Sex: Female

DRUGS (1)
  1. TRUQAP [Suspect]
     Active Substance: CAPIVASERTIB
     Dosage: 400 MILLIGRAM, BID
     Dates: start: 202411

REACTIONS (5)
  - Neurogenic bladder [Unknown]
  - Urinary tract infection [Unknown]
  - Anxiety [Unknown]
  - Diarrhoea [Unknown]
  - Decreased appetite [Unknown]
